FAERS Safety Report 8820450 (Version 1)
Quarter: 2012Q4

REPORT INFORMATION
  Report Type: 
  Country: RU (occurrence: RU)
  Receive Date: 20121002
  Receipt Date: 20121002
  Transmission Date: 20130627
  Serious: Yes (Hospitalization, Other)
  Sender: FDA-Public Use
  Company Number: RU-ASTRAZENECA-2012SE60176

PATIENT
  Age: 50 Year
  Sex: Female

DRUGS (1)
  1. BRILINTA [Suspect]
     Indication: ATHEROSCLEROSIS PROPHYLAXIS
     Route: 048
     Dates: start: 201208

REACTIONS (1)
  - Thrombosis in device [Recovered/Resolved]
